FAERS Safety Report 8824980 (Version 2)
Quarter: 2012Q4

REPORT INFORMATION
  Report Type: 
  Country: ES (occurrence: ES)
  Receive Date: 20121004
  Receipt Date: 20121022
  Transmission Date: 20130627
  Serious: Yes (Other)
  Sender: FDA-Public Use
  Company Number: ES-PFIZER INC-2012240869

PATIENT
  Age: 79 Year
  Sex: Male

DRUGS (1)
  1. ZYVOXID [Suspect]
     Indication: PNEUMONIA
     Dosage: UNK
     Route: 042
     Dates: start: 20110928

REACTIONS (1)
  - Thrombocytopenia [Unknown]
